FAERS Safety Report 14918218 (Version 1)
Quarter: 2018Q2

REPORT INFORMATION
  Report Type: Spontaneous
  Country: US (occurrence: US)
  Receive Date: 20180502
  Receipt Date: 20180502
  Transmission Date: 20180711
  Serious: Yes (Disabling, Other)
  Sender: FDA-Public Use
  Company Number: None

PATIENT
  Age: 43 Year
  Sex: Female
  Weight: 58.5 kg

DRUGS (5)
  1. GAVISCON [Concomitant]
     Active Substance: ALUMINUM HYDROXIDE\MAGNESIUM CARBONATE
  2. MIRALAX [Concomitant]
     Active Substance: POLYETHYLENE GLYCOL 3350
  3. REFRESH [Concomitant]
     Active Substance: UNSPECIFIED INGREDIENT
  4. TUMS [Concomitant]
     Active Substance: CALCIUM CARBONATE
  5. FLUOXETINE [Suspect]
     Active Substance: FLUOXETINE HYDROCHLORIDE
     Indication: ANXIETY
     Dosage: ?          QUANTITY:1 CAPSULE(S);?
     Route: 048
     Dates: start: 20171231, end: 20180102

REACTIONS (12)
  - Palpitations [None]
  - Depressed level of consciousness [None]
  - Pollakiuria [None]
  - Chills [None]
  - Depersonalisation/derealisation disorder [None]
  - Tinnitus [None]
  - Dry eye [None]
  - Chest discomfort [None]
  - Tremor [None]
  - Insomnia [None]
  - Central nervous system stimulation [None]
  - Euphoric mood [None]

NARRATIVE: CASE EVENT DATE: 20180103
